FAERS Safety Report 7770194-9 (Version None)
Quarter: 2011Q3

REPORT INFORMATION
  Report Type: 
  Country: None (occurrence: None)
  Receive Date: 20110922
  Receipt Date: 20110304
  Transmission Date: 20111222
  Serious: No
  Sender: FDA-Public Use
  Company Number: US-ASTRAZENECA-2011SE12273

PATIENT
  Age: 30 Year
  Sex: Female
  Weight: 113.4 kg

DRUGS (6)
  1. DILAUDID [Concomitant]
  2. GABAPENTIN [Concomitant]
     Indication: NEURALGIA
  3. CLONAZEPAM [Concomitant]
  4. SEROQUEL [Suspect]
     Indication: SLEEP DISORDER
     Route: 048
     Dates: start: 20100101, end: 20100101
  5. METHADONE HCL [Concomitant]
  6. FLEXERIL [Concomitant]

REACTIONS (5)
  - NO ADVERSE EVENT [None]
  - THERAPEUTIC RESPONSE UNEXPECTED [None]
  - OFF LABEL USE [None]
  - INSOMNIA [None]
  - DRUG DOSE OMISSION [None]
